FAERS Safety Report 8635433 (Version 4)
Quarter: 2012Q4

REPORT INFORMATION
  Report Type: Report from Study
  Country: DE (occurrence: DE)
  Receive Date: 20120626
  Receipt Date: 20120913
  Transmission Date: 20130627
  Serious: Yes (Life-Threatening, Hospitalization, Disabling)
  Sender: FDA-Public Use
  Company Number: DE-ROCHE-1081698

PATIENT
  Age: 80 Year
  Sex: Female

DRUGS (10)
  1. RANIBIZUMAB [Suspect]
     Indication: AGE-RELATED MACULAR DEGENERATION
     Route: 050
     Dates: start: 20080424
  2. RANIBIZUMAB [Suspect]
     Route: 050
     Dates: start: 20100916
  3. RANIBIZUMAB [Suspect]
     Route: 050
     Dates: start: 20110127
  4. RANIBIZUMAB [Suspect]
     Route: 050
     Dates: start: 20120301
  5. RANIBIZUMAB [Suspect]
     Route: 050
     Dates: start: 20120329
  6. RANIBIZUMAB [Suspect]
     Route: 050
     Dates: start: 20120503
  7. RAMIPRIL [Concomitant]
     Indication: HYPERTENSION
  8. METOBETA [Concomitant]
     Indication: HYPERTENSION
  9. ISOKET [Concomitant]
  10. ASS [Concomitant]
     Indication: ANTICOAGULANT THERAPY

REACTIONS (7)
  - Cerebrovascular accident [Not Recovered/Not Resolved]
  - Age-related macular degeneration [Not Recovered/Not Resolved]
  - Dizziness [Unknown]
  - Balance disorder [Unknown]
  - Coordination abnormal [Unknown]
  - Gait disturbance [Unknown]
  - Fall [Unknown]
